FAERS Safety Report 10847308 (Version 1)
Quarter: 2015Q1

REPORT INFORMATION
  Report Type: Spontaneous
  Country: US (occurrence: US)
  Receive Date: 20150220
  Receipt Date: 20150220
  Transmission Date: 20150721
  Serious: Yes (Other)
  Sender: FDA-Public Use
  Company Number: US-PFIZER INC-2015062240

PATIENT
  Age: 61 Year
  Sex: Female
  Weight: 46 kg

DRUGS (2)
  1. CLONAZEPAM. [Concomitant]
     Active Substance: CLONAZEPAM
     Indication: ANXIETY
     Dosage: 1 MG, 2X/DAY
  2. NARDIL [Suspect]
     Active Substance: PHENELZINE SULFATE
     Indication: DEPRESSION
     Dosage: 15 MG, 3 PILLS IN THE MORNING AND 4 HOURS LATER 2 TABLETS
     Dates: start: 1987

REACTIONS (2)
  - Abdominal pain [Not Recovered/Not Resolved]
  - Sleep disorder [Not Recovered/Not Resolved]
